FAERS Safety Report 13132990 (Version 1)
Quarter: 2017Q1

REPORT INFORMATION
  Report Type: Spontaneous
  Country: US (occurrence: US)
  Receive Date: 20170119
  Receipt Date: 20170119
  Transmission Date: 20170428
  Serious: No
  Sender: FDA-Public Use
  Company Number: None

PATIENT
  Age: 21 Year
  Sex: Female

DRUGS (1)
  1. BENZEFOAM [Suspect]
     Active Substance: BENZOYL PEROXIDE

REACTIONS (2)
  - Rash erythematous [None]
  - Expired product administered [None]

NARRATIVE: CASE EVENT DATE: 20170118
